FAERS Safety Report 5879297-7 (Version None)
Quarter: 2008Q3

REPORT INFORMATION
  Report Type: 
  Country: None (occurrence: None)
  Receive Date: 20080912
  Receipt Date: 20080723
  Transmission Date: 20090109
  Serious: Yes (Other)
  Sender: FDA-Public Use
  Company Number: US-PURDUE-USA_2008_0034551

PATIENT
  Sex: Male
  Weight: 76 kg

DRUGS (8)
  1. OXYCONTIN [Suspect]
     Indication: PAIN
     Dosage: 20 MG, SEE TEXT
     Route: 048
     Dates: start: 20031112, end: 20030501
  2. DILANTIN [Concomitant]
     Indication: CONVULSION
     Dosage: 100 MG, DAILY
  3. ENBREL [Concomitant]
     Dosage: 25 MG, DAILY
  4. HYDROCODONE W/ACETYLSALICYLIC ACID [Concomitant]
     Dosage: UNK, DAILY
  5. AMITRIPTYLINE HCL [Concomitant]
     Indication: DRUG USE FOR UNKNOWN INDICATION
     Dosage: 25 MG, DAILY
  6. SKELAXIN [Concomitant]
     Indication: DRUG USE FOR UNKNOWN INDICATION
     Dosage: 400 MG, DAILY
  7. HYDROCHLOROTHIAZIDE [Concomitant]
     Indication: HYPERTENSION
     Dosage: UNK, UNK
  8. CARBATROL [Concomitant]
     Indication: CONVULSION

REACTIONS (4)
  - DEPRESSION [None]
  - NERVOUS SYSTEM DISORDER [None]
  - SUICIDAL IDEATION [None]
  - WEIGHT DECREASED [None]
